FAERS Safety Report 11376879 (Version 1)
Quarter: 2015Q3

REPORT INFORMATION
  Report Type: Spontaneous
  Country: US (occurrence: US)
  Receive Date: 20150813
  Receipt Date: 20150813
  Transmission Date: 20151125
  Serious: No
  Sender: FDA-Public Use
  Company Number: US-GLAXOSMITHKLINE-US2015GSK114142

PATIENT
  Sex: Male

DRUGS (7)
  1. TRAMADOL. [Concomitant]
     Active Substance: TRAMADOL
  2. GLIPIZIDE. [Concomitant]
     Active Substance: GLIPIZIDE
  3. WARFARIN [Concomitant]
     Active Substance: WARFARIN
  4. IBUPROFEN. [Concomitant]
     Active Substance: IBUPROFEN
  5. VOTRIENT [Suspect]
     Active Substance: PAZOPANIB HYDROCHLORIDE
     Indication: RENAL CANCER
     Dosage: 800 MG, QD
     Route: 048
     Dates: start: 20150630
  6. MELATONIN [Concomitant]
     Active Substance: MELATONIN
  7. AFINITOR [Concomitant]
     Active Substance: EVEROLIMUS

REACTIONS (3)
  - Malaise [Unknown]
  - Peripheral swelling [Unknown]
  - Oedema [Unknown]
